FAERS Safety Report 10614876 (Version 1)
Quarter: 2014Q4

REPORT INFORMATION
  Report Type: Spontaneous
  Country: US (occurrence: US)
  Receive Date: 20141201
  Receipt Date: 20141201
  Transmission Date: 20150529
  Serious: No
  Sender: FDA-Public Use
  Company Number: US-ASTRAZENECA-2014SE89952

PATIENT
  Age: 799 Month
  Sex: Female
  Weight: 53.5 kg

DRUGS (4)
  1. CRESTOR [Suspect]
     Active Substance: ROSUVASTATIN CALCIUM
     Indication: BLOOD CHOLESTEROL INCREASED
     Route: 048
     Dates: start: 201410, end: 201411
  2. HYDROCHLOROTHIAZIDE. [Concomitant]
     Active Substance: HYDROCHLOROTHIAZIDE
     Indication: BLOOD PRESSURE ABNORMAL
     Route: 048
  3. CALCIUM CITRATE WITH D [Concomitant]
     Indication: BONE DENSITY ABNORMAL
     Route: 048
  4. MULTIVITAMIN [Concomitant]
     Active Substance: VITAMINS
     Route: 048

REACTIONS (4)
  - Dyspepsia [Recovering/Resolving]
  - Abdominal discomfort [Recovering/Resolving]
  - Drug prescribing error [Unknown]
  - Gastrooesophageal reflux disease [Recovering/Resolving]

NARRATIVE: CASE EVENT DATE: 201410
